FAERS Safety Report 5012303-0 (Version None)
Quarter: 2006Q2

REPORT INFORMATION
  Report Type: 
  Country: None (occurrence: None)
  Receive Date: 20060410
  Receipt Date: 20050518
  Transmission Date: 20061013
  Serious: Yes (Hospitalization)
  Sender: FDA-Public Use
  Company Number: 05P-163-0300770-00

PATIENT
  Age: 73 Year
  Sex: Female

DRUGS (4)
  1. DEPAKOTE [Suspect]
     Indication: CONVULSION
     Dates: start: 20050203, end: 20050406
  2. DEPAKENE [Suspect]
     Indication: CONVULSION
     Dates: start: 20050406
  3. KEPTRA [Concomitant]
  4. LACTULOSE [Concomitant]

REACTIONS (1)
  - ENCEPHALOPATHY [None]
